FAERS Safety Report 6174938-1 (Version None)
Quarter: 2009Q2

REPORT INFORMATION
  Report Type: 
  Country: None (occurrence: None)
  Receive Date: 20090430
  Receipt Date: 20081015
  Transmission Date: 20091009
  Serious: No
  Sender: FDA-Public Use
  Company Number: US-ASTRAZENECA-2008UW22716

PATIENT
  Age: 63 Year
  Sex: Female
  Weight: 64 kg

DRUGS (9)
  1. NEXIUM [Suspect]
     Indication: GASTROOESOPHAGEAL REFLUX DISEASE
     Route: 048
  2. NEXIUM [Suspect]
     Route: 048
  3. LIBRAX [Concomitant]
  4. IMODIUM [Concomitant]
  5. AMITRIP/CDP [Concomitant]
  6. TOPROL-XL [Concomitant]
     Route: 048
  7. ATACAND [Concomitant]
     Route: 048
  8. ZOCOR [Concomitant]
  9. PLAVIX [Concomitant]

REACTIONS (2)
  - DRY MOUTH [None]
  - DYSPHONIA [None]
